FAERS Safety Report 26211966 (Version 1)
Quarter: 2025Q4

REPORT INFORMATION
  Report Type: Spontaneous
  Country: US (occurrence: US)
  Receive Date: 20251230
  Receipt Date: 20251230
  Transmission Date: 20260118
  Serious: Yes (Other)
  Sender: CATALYST PHARMA
  Company Number: US-CATALYST PHARMACEUTICALS, INC-US-CATA-25-01697

PATIENT
  Sex: Female
  Weight: 63.946 kg

DRUGS (24)
  1. FIRDAPSE [Suspect]
     Active Substance: AMIFAMPRIDINE PHOSPHATE
     Indication: Myasthenic syndrome
     Dosage: 10 MG 3 TIMES A DAY
     Route: 048
     Dates: start: 20240525, end: 2024
  2. FIRDAPSE [Suspect]
     Active Substance: AMIFAMPRIDINE PHOSPHATE
     Dosage: 20 MG 5 TIMES A DAY (100 MG DAILY))
     Route: 048
     Dates: start: 20240806
  3. PROPRANOLOL [Concomitant]
     Active Substance: PROPRANOLOL HYDROCHLORIDE
     Indication: Migraine
     Dosage: 60 MG DAILY
     Route: 065
  4. NALTREX [Concomitant]
     Indication: Inflammation
     Dosage: 4.5 MG DAILY
     Route: 065
  5. LORATADINE [Concomitant]
     Active Substance: LORATADINE
     Indication: Hypersensitivity
     Dosage: 10 MG AS NEEDED
     Route: 065
  6. DIFLUCAN [Concomitant]
     Active Substance: FLUCONAZOLE
     Indication: Prophylaxis urinary tract infection
     Dosage: 150 MG AS NEEDED
     Route: 065
  7. ATIVAN [Concomitant]
     Active Substance: LORAZEPAM
     Indication: Anxiety
     Dosage: 0.5 MG AS NEEDED
     Route: 065
  8. AMBIEN [Concomitant]
     Active Substance: ZOLPIDEM TARTRATE
     Indication: Insomnia
     Dosage: 10 MG AT BEDTIME
     Route: 065
  9. DOXYCYCLINE HYCLATE [Concomitant]
     Active Substance: DOXYCYCLINE HYCLATE
     Indication: Lyme disease
     Dosage: 200 MG TWICE DAILY
     Route: 065
  10. CEFUROXIME [Concomitant]
     Active Substance: CEFUROXIME
     Indication: Lyme disease
     Dosage: 250 MG TWICE DAILY
     Route: 065
  11. IMITREX [Concomitant]
     Active Substance: SUMATRIPTAN SUCCINATE
     Indication: Migraine
     Dosage: 25 MG AS NEEDED
     Route: 065
  12. RESTASIS [Concomitant]
     Active Substance: CYCLOSPORINE
     Indication: Dry eye
     Dosage: TWICE DAILY
     Route: 065
  13. CROMOLYN [Concomitant]
     Active Substance: CROMOLYN
     Indication: Hypersensitivity
     Dosage: DAILY
     Route: 065
  14. GAMMAGARD [Concomitant]
     Active Substance: HUMAN IMMUNOGLOBULIN G
     Indication: Myasthenic syndrome
     Dosage: ONCE A MONTH
     Route: 065
  15. OMEPRAZOLE [Concomitant]
     Active Substance: OMEPRAZOLE
     Indication: Gastrooesophageal reflux disease
     Dosage: 20 MG DAILY
     Route: 065
  16. ONDANSETRON [Concomitant]
     Active Substance: ONDANSETRON
     Indication: Nausea
     Dosage: 8 MG DAILY
     Route: 065
  17. BACLOFEN [Concomitant]
     Active Substance: BACLOFEN
     Indication: Pain
     Dosage: 5 MG TWICE DAILY
     Route: 065
  18. PERCOCET [Concomitant]
     Active Substance: ACETAMINOPHEN\OXYCODONE HYDROCHLORIDE
     Indication: Pain
     Dosage: 5/325 AS NEEDED
     Route: 065
  19. ALBUTEROL SULFATE [Concomitant]
     Active Substance: ALBUTEROL SULFATE
     Indication: Respiratory disorder
     Dosage: AS NEEDED
     Route: 065
  20. ACETAZOLAMIDE [Concomitant]
     Active Substance: ACETAZOLAMIDE
     Indication: Swelling
     Dosage: 250 MG THREE TIMES DAILY
     Route: 065
  21. NURTEC ODT [Concomitant]
     Active Substance: RIMEGEPANT SULFATE
     Indication: Migraine
     Dosage: 75 MG AS NEEDED
     Route: 065
  22. XIIDRA [Concomitant]
     Active Substance: LIFITEGRAST
     Indication: Dry eye
     Dosage: DAILY
     Route: 047
  23. PROGESTERONE [Concomitant]
     Active Substance: PROGESTERONE
     Indication: Hormone replacement therapy
     Dosage: 100 MG DAILY
     Route: 065
  24. FLUOCINONIDE [Concomitant]
     Active Substance: FLUOCINONIDE
     Indication: Rash
     Dosage: AS NEEDED
     Route: 065

REACTIONS (2)
  - Mast cell activation syndrome [Not Recovered/Not Resolved]
  - Hypermobility syndrome [Recovering/Resolving]
